FAERS Safety Report 8247063-3 (Version None)
Quarter: 2012Q1

REPORT INFORMATION
  Report Type: 
  Country: None (occurrence: None)
  Receive Date: 20120330
  Receipt Date: 20120320
  Transmission Date: 20120608
  Serious: Yes (Hospitalization)
  Sender: FDA-Public Use
  Company Number: AT-ROCHE-1050824

PATIENT
  Age: 55 Year
  Sex: Male
  Weight: 79 kg

DRUGS (5)
  1. XELODA [Suspect]
     Indication: GASTRIC CANCER
     Route: 048
     Dates: start: 20120201
  2. OXALIPLATIN [Suspect]
     Indication: GASTRIC CANCER
  3. EPIRUBICIN HYDROCHLORIDE [Suspect]
     Indication: GASTRIC CANCER
  4. CAL-D-VITA [Concomitant]
  5. HYDAL [Concomitant]

REACTIONS (2)
  - GENERAL PHYSICAL HEALTH DETERIORATION [None]
  - DECREASED APPETITE [None]
